FAERS Safety Report 25578120 (Version 1)
Quarter: 2025Q3

REPORT INFORMATION
  Report Type: Spontaneous
  Country: GB (occurrence: GB)
  Receive Date: 20250718
  Receipt Date: 20250718
  Transmission Date: 20251020
  Serious: Yes (Hospitalization, Other)
  Sender: ABBVIE
  Company Number: None

PATIENT
  Sex: Male

DRUGS (3)
  1. BOTOX [Suspect]
     Active Substance: ONABOTULINUMTOXINA
     Indication: Facial cosmetic procedure
     Route: 065
     Dates: start: 20250705, end: 20250705
  2. BOTOX [Suspect]
     Active Substance: ONABOTULINUMTOXINA
     Indication: Facial cosmetic procedure
     Route: 065
     Dates: start: 20250712, end: 20250712
  3. PYRIDOSTIGMINE [Concomitant]
     Active Substance: PYRIDOSTIGMINE
     Indication: Product used for unknown indication
     Dates: start: 20250711

REACTIONS (8)
  - Neuromuscular toxicity [Not Recovered/Not Resolved]
  - Eyelid ptosis [Unknown]
  - Hypoaesthesia [Unknown]
  - Facial paresis [Unknown]
  - Dysphagia [Unknown]
  - Dysarthria [Unknown]
  - Muscular weakness [Unknown]
  - Respiratory failure [Unknown]

NARRATIVE: CASE EVENT DATE: 20250701
